FAERS Safety Report 9495074 (Version 2)
Quarter: 2013Q3

REPORT INFORMATION
  Report Type: Spontaneous
  Country: FR (occurrence: FR)
  Receive Date: 20130903
  Receipt Date: 20130912
  Transmission Date: 20140515
  Serious: Yes (Hospitalization, Other)
  Sender: FDA-Public Use
  Company Number: FR-PFIZER INC-2013250275

PATIENT
  Age: 72 Year
  Sex: Male

DRUGS (11)
  1. AMLOR [Suspect]
     Indication: HYPERTENSION
     Dosage: UNK
     Route: 048
     Dates: end: 20120301
  2. KARDEGIC [Concomitant]
     Route: 048
  3. ATENOLOL [Concomitant]
     Indication: HYPERTENSION
     Dosage: UNK
     Route: 048
  4. LASILIX [Concomitant]
     Indication: HYPERTENSION
     Dosage: 40 MG, 1X/DAY
     Route: 048
  5. COZAAR [Concomitant]
     Indication: HYPERTENSION
     Dosage: UNK
     Route: 048
  6. JANUVIA [Concomitant]
     Indication: DIABETES MELLITUS
     Dosage: UNK
     Route: 048
  7. NOVONORM [Concomitant]
     Indication: DIABETES MELLITUS
     Dosage: 2 MG, 3X/DAY
     Route: 048
  8. ELISOR [Concomitant]
     Indication: HYPERCHOLESTEROLAEMIA
     Dosage: UNK
     Route: 048
  9. HYPERIUM [Concomitant]
     Indication: HYPERTENSION
     Dosage: UNK
     Route: 048
  10. LANZOR [Concomitant]
  11. LOCOID [Concomitant]

REACTIONS (3)
  - Eczema [Recovered/Resolved]
  - Renal failure acute [Unknown]
  - Gamma-glutamyltransferase increased [Unknown]
